FAERS Safety Report 6962407-8 (Version None)
Quarter: 2010Q3

REPORT INFORMATION
  Report Type: 
  Country: None (occurrence: None)
  Receive Date: 20100902
  Receipt Date: 20100720
  Transmission Date: 20110219
  Serious: Yes (Other)
  Sender: FDA-Public Use
  Company Number: US-SANOFI-AVENTIS-2010SA043018

PATIENT
  Age: 44 Year
  Sex: Female

DRUGS (1)
  1. LOVENOX [Suspect]
     Route: 065
     Dates: start: 20100604, end: 20100604

REACTIONS (2)
  - INJURY ASSOCIATED WITH DEVICE [None]
  - PRODUCT QUALITY ISSUE [None]
